FAERS Safety Report 11933903 (Version 1)
Quarter: 2016Q1

REPORT INFORMATION
  Report Type: Spontaneous
  Country: US (occurrence: US)
  Receive Date: 20160121
  Receipt Date: 20160121
  Transmission Date: 20160526
  Serious: Yes (Other)
  Sender: FDA-Public Use
  Company Number: US-TEVA-627019ACC

PATIENT
  Age: 24 Year
  Sex: Female
  Weight: 102.6 kg

DRUGS (2)
  1. KEFLEX [Concomitant]
     Active Substance: CEPHALEXIN
     Indication: VULVA CYST
     Dates: start: 20151216
  2. PARAGARD T 380A [Suspect]
     Active Substance: COPPER
     Indication: CONTRACEPTION
     Dates: start: 20151116, end: 20151229

REACTIONS (2)
  - Device dislocation [Recovered/Resolved]
  - Vulva cyst [Unknown]

NARRATIVE: CASE EVENT DATE: 20151216
